FAERS Safety Report 18812231 (Version 1)
Quarter: 2021Q1

REPORT INFORMATION
  Report Type: Spontaneous
  Country: CA (occurrence: CA)
  Receive Date: 20210129
  Receipt Date: 20210129
  Transmission Date: 20210419
  Serious: Yes (Life-Threatening, Hospitalization)
  Sender: FDA-Public Use
  Company Number: CA-TEVA-2021-CA-1873610

PATIENT
  Age: 15 Year
  Sex: Male
  Weight: 72 kg

DRUGS (14)
  1. SULFAMETHOXAZOLE AND TRIMETHOPRIM [Concomitant]
     Active Substance: SULFAMETHOXAZOLE\TRIMETHOPRIM
  2. ACETAMINOPHEN. [Concomitant]
     Active Substance: ACETAMINOPHEN
  3. GABAPENTIN. [Concomitant]
     Active Substance: GABAPENTIN
  4. CYCLOPHOSPHAMIDE. [Suspect]
     Active Substance: CYCLOPHOSPHAMIDE
     Indication: RHABDOMYOSARCOMA RECURRENT
     Route: 042
  5. CALCIUM [Concomitant]
     Active Substance: CALCIUM
  6. LANSOPRAZOLE. [Concomitant]
     Active Substance: LANSOPRAZOLE
  7. TORISEL [Suspect]
     Active Substance: TEMSIROLIMUS
     Indication: RHABDOMYOSARCOMA RECURRENT
  8. TORISEL [Suspect]
     Active Substance: TEMSIROLIMUS
     Route: 042
  9. CHOLECALCIFEROL [Concomitant]
     Active Substance: CHOLECALCIFEROL
  10. VINORELBINE TARTRATE FOR INJECTION [Suspect]
     Active Substance: VINORELBINE TARTRATE
     Indication: RHABDOMYOSARCOMA RECURRENT
     Route: 042
  11. DIPHENHYDRAMINE. [Concomitant]
     Active Substance: DIPHENHYDRAMINE
  12. OLANZAPINE. [Concomitant]
     Active Substance: OLANZAPINE
  13. ENOXAPARIN [Concomitant]
     Active Substance: ENOXAPARIN
  14. MELATONIN [Concomitant]
     Active Substance: MELATONIN

REACTIONS (1)
  - Febrile neutropenia [Recovered/Resolved]
